FAERS Safety Report 4948285-7 (Version None)
Quarter: 2006Q1

REPORT INFORMATION
  Report Type: 
  Country: None (occurrence: None)
  Receive Date: 20060313
  Receipt Date: 20060303
  Transmission Date: 20060701
  Serious: Yes (Death)
  Sender: FDA-Public Use
  Company Number: 222766

PATIENT

DRUGS (1)
  1. ACTIVASE [Suspect]
     Indication: ISCHAEMIC STROKE
     Dosage: 52 MG, SINGLE, INTRAVENOUS
     Route: 042
     Dates: start: 20060107

REACTIONS (1)
  - CARDIOGENIC SHOCK [None]
